FAERS Safety Report 9278884 (Version 3)
Quarter: 2014Q1

REPORT INFORMATION
  Report Type: Report from Study
  Country: BR (occurrence: BR)
  Receive Date: 20130508
  Receipt Date: 20140122
  Transmission Date: 20141002
  Serious: Yes (Hospitalization, Other)
  Sender: FDA-Public Use
  Company Number: BR-AMGEN-BRACT2012041042

PATIENT
  Age: 72 Year
  Sex: Male
  Weight: 64.99 kg

DRUGS (13)
  1. ETANERCEPT [Suspect]
     Indication: ANKYLOSING SPONDYLITIS
     Dosage: 50 MG, 1X/WEEK
     Route: 058
     Dates: start: 20111114, end: 201308
  2. ETANERCEPT [Suspect]
     Indication: RHEUMATOID ARTHRITIS
     Dosage: UNK
     Route: 065
  3. ETANERCEPT [Suspect]
     Dosage: UNK
     Route: 065
  4. ETANERCEPT [Suspect]
     Dosage: UNSPECIFIED DOSE, ONCE WEEKLY
     Route: 048
     Dates: start: 2011
  5. ETANERCEPT [Suspect]
     Dosage: UNSPECIFIED DOSE, ONCE WEEKLY
     Route: 048
     Dates: end: 20130617
  6. CHLOROQUINE [Concomitant]
     Indication: PAIN
     Dosage: 7 MG, UNK
  7. CHLOROQUINE [Concomitant]
     Indication: ANKYLOSING SPONDYLITIS
     Dosage: 7 MG, UNK
     Dates: start: 2011, end: 2011
  8. TRIAMCINOLONE [Concomitant]
     Dosage: UNK
  9. PIROXICAM [Concomitant]
     Indication: PAIN
     Dosage: 20 MG, UNK
  10. METHOTREXATE [Concomitant]
     Indication: ARTHRITIS
     Dosage: 2.5 MG, UNK
     Dates: start: 2006
  11. METHOTREXATE [Concomitant]
     Indication: ANKYLOSING SPONDYLITIS
  12. PHENOBARBITAL [Concomitant]
     Dosage: UNK
  13. OMEPRAZOLE [Concomitant]
     Indication: GASTRIC DISORDER
     Dosage: 40 MG, UNK

REACTIONS (15)
  - Duodenal ulcer [Unknown]
  - Gastric haemorrhage [Unknown]
  - Gastric ulcer [Unknown]
  - Pulmonary fibrosis [Unknown]
  - Malaise [Not Recovered/Not Resolved]
  - Injection site pain [Recovering/Resolving]
  - Inguinal hernia [Unknown]
  - Hernia [Unknown]
  - Back pain [Unknown]
  - Arthralgia [Unknown]
  - Joint swelling [Unknown]
  - Pain [Unknown]
  - Incorrect route of drug administration [Unknown]
  - Drug ineffective [Unknown]
  - Gait disturbance [Unknown]
